FAERS Safety Report 4508018-5 (Version None)
Quarter: 2004Q4

REPORT INFORMATION
  Report Type: 
  Country: None (occurrence: None)
  Receive Date: 20041122
  Receipt Date: 20041122
  Transmission Date: 20050328
  Serious: Yes (Life-Threatening, Hospitalization)
  Sender: FDA-Public Use
  Company Number: None

PATIENT
  Age: 50 Year
  Sex: Female
  Weight: 83.2 kg

DRUGS (1)
  1. ISOSULFAN BLUE  5 ML [Suspect]
     Indication: LYMPHATIC DISORDER
     Dosage: 5 ML  X 1 SUBCUTANEOUS
     Route: 058
     Dates: start: 20041117, end: 20041117

REACTIONS (1)
  - ANAPHYLACTIC REACTION [None]
